FAERS Safety Report 21187531 (Version 3)
Quarter: 2022Q4

REPORT INFORMATION
  Report Type: Spontaneous
  Country: JP (occurrence: JP)
  Receive Date: 20220808
  Receipt Date: 20221005
  Transmission Date: 20230112
  Serious: No
  Sender: FDA-Public Use
  Company Number: JP-AMGEN-JPNSP2022133647

PATIENT
  Sex: Female

DRUGS (1)
  1. EVENITY [Suspect]
     Active Substance: ROMOSOZUMAB-AQQG
     Indication: Osteoporosis
     Dosage: 210 MILLIGRAM, QMO
     Route: 058

REACTIONS (3)
  - Gastrointestinal disorder [Unknown]
  - Anaemia [Recovering/Resolving]
  - Zinc deficiency [Recovering/Resolving]

NARRATIVE: CASE EVENT DATE: 20220711
